FAERS Safety Report 15137696 (Version 2)
Quarter: 2019Q2

REPORT INFORMATION
  Report Type: Spontaneous
  Country: NO (occurrence: NO)
  Receive Date: 20180712
  Receipt Date: 20190409
  Transmission Date: 20190711
  Serious: Yes (Hospitalization)
  Sender: FDA-Public Use
  Company Number: NO-BIOMARINAP-NO-2018-119013

PATIENT
  Age: 3 Year
  Sex: Female

DRUGS (4)
  1. PARACET                            /00020001/ [Concomitant]
     Active Substance: ACETAMINOPHEN
     Dosage: 5.2 MILLILITER
     Route: 048
  2. VIMIZIM [Suspect]
     Active Substance: ELOSULFASE ALFA
     Indication: MUCOPOLYSACCHARIDOSIS IV
     Dosage: 20 MG, QW
     Route: 042
     Dates: start: 20180306
  3. CETIRIZIN [Concomitant]
     Active Substance: CETIRIZINE HYDROCHLORIDE
     Indication: PREMEDICATION
     Dosage: 2.5 MG, UNK
     Route: 048
  4. PARACET                            /00020001/ [Concomitant]
     Active Substance: ACETAMINOPHEN
     Indication: PREMEDICATION
     Dosage: 125 MG, UNK
     Route: 048

REACTIONS (7)
  - Fatigue [Unknown]
  - Abdominal pain upper [Unknown]
  - Chills [Unknown]
  - Pyrexia [Unknown]
  - Retching [Unknown]
  - Cough [Unknown]
  - Vomiting [Unknown]

NARRATIVE: CASE EVENT DATE: 201804
